FAERS Safety Report 6198839-8 (Version None)
Quarter: 2009Q2

REPORT INFORMATION
  Report Type: 
  Country: None (occurrence: None)
  Receive Date: 20090522
  Receipt Date: 20090511
  Transmission Date: 20091009
  Serious: Yes (Congenital Anomaly)
  Sender: FDA-Public Use
  Company Number: HQWYE162212MAY03

PATIENT

DRUGS (1)
  1. EFFEXOR [Suspect]
     Dosage: DOSE AVERAGE WAS 37.5 MG TWICE DAILY
     Route: 064

REACTIONS (3)
  - DRUG EXPOSURE DURING PREGNANCY [None]
  - NEURAL TUBE DEFECT [None]
  - TALIPES [None]
